FAERS Safety Report 9859388 (Version 1)
Quarter: 2014Q1

REPORT INFORMATION
  Report Type: Spontaneous
  Country: GR (occurrence: None)
  Receive Date: 20140128
  Receipt Date: 20140128
  Transmission Date: 20141002
  Serious: Yes (Hospitalization)
  Sender: FDA-Public Use
  Company Number: 7264927

PATIENT
  Age: 50 Year
  Sex: Male

DRUGS (1)
  1. THYROXINE [Suspect]
     Indication: THYROIDECTOMY

REACTIONS (12)
  - Cellulitis gangrenous [None]
  - Pyrexia [None]
  - Diarrhoea [None]
  - Vomiting [None]
  - Abdominal pain [None]
  - Chest pain [None]
  - Musculoskeletal pain [None]
  - Haemodynamic instability [None]
  - Dyspnoea [None]
  - Aspartate aminotransferase increased [None]
  - Alanine aminotransferase increased [None]
  - Blood lactate dehydrogenase increased [None]
